FAERS Safety Report 4899745-9 (Version None)
Quarter: 2006Q1

REPORT INFORMATION
  Report Type: 
  Country: None (occurrence: None)
  Receive Date: 20060131
  Receipt Date: 20060118
  Transmission Date: 20060701
  Serious: Yes (Other)
  Sender: FDA-Public Use
  Company Number: 221262

PATIENT
  Age: 68 Year
  Sex: Male

DRUGS (5)
  1. AVASTIN [Suspect]
     Indication: COLON CANCER
     Dosage: INTRAVENOUS
     Route: 042
     Dates: start: 20050101
  2. FLUOROURACIL [Suspect]
     Indication: COLON CANCER
     Dates: start: 20050101
  3. LEUCOVORIN CALCIUM [Suspect]
     Indication: COLON CANCER
     Dates: start: 20050101
  4. ELOXATIN [Suspect]
     Indication: COLON CANCER
     Dosage: INTRAVENOUS
     Route: 042
     Dates: start: 20050101
  5. MULTI-VITAMINS [Concomitant]

REACTIONS (3)
  - METASTASES TO LIVER [None]
  - NEUROPATHY PERIPHERAL [None]
  - VASCULITIS [None]
